FAERS Safety Report 26099761 (Version 1)
Quarter: 2025Q4

REPORT INFORMATION
  Report Type: Spontaneous
  Country: BR (occurrence: BR)
  Receive Date: 20251128
  Receipt Date: 20251128
  Transmission Date: 20260117
  Serious: No
  Sender: ALKEM
  Company Number: BR-ALKEM LABORATORIES LIMITED-BR-ALKEM-2025-05608

PATIENT

DRUGS (6)
  1. OLANZAPINE [Suspect]
     Active Substance: OLANZAPINE
     Indication: Nausea
     Dosage: 5 MILLIGRAMS, OD, (DAYS 1-5)
     Route: 065
  2. OLANZAPINE [Suspect]
     Active Substance: OLANZAPINE
     Indication: Vomiting
  3. NETUPITANT [Concomitant]
     Active Substance: NETUPITANT
     Indication: Nausea
     Dosage: 300 MILLIGRAMS, DAY 1
     Route: 065
  4. NETUPITANT [Concomitant]
     Active Substance: NETUPITANT
     Indication: Vomiting
  5. PALONOSETRON [Concomitant]
     Active Substance: PALONOSETRON
     Indication: Nausea
     Dosage: 0.5 MILLIGRAM (ON DAY 1)
     Route: 065
  6. PALONOSETRON [Concomitant]
     Active Substance: PALONOSETRON
     Indication: Vomiting

REACTIONS (2)
  - Dizziness [Unknown]
  - Somnolence [Unknown]
